FAERS Safety Report 6030525-7 (Version None)
Quarter: 2009Q1

REPORT INFORMATION
  Report Type: 
  Country: None (occurrence: None)
  Receive Date: 20090105
  Receipt Date: 20090105
  Transmission Date: 20090719
  Serious: Yes (Life-Threatening)
  Sender: FDA-Public Use
  Company Number: None

PATIENT
  Sex: Female
  Weight: 73.0291 kg

DRUGS (1)
  1. TOPAMAX [Suspect]
     Indication: MIGRAINE PROPHYLAXIS
     Dosage: TWO TIMES DAILY PO
     Route: 048
     Dates: start: 20081031, end: 20081104

REACTIONS (12)
  - ABNORMAL BEHAVIOUR [None]
  - ANXIETY [None]
  - COUGH [None]
  - CRYING [None]
  - FEELING ABNORMAL [None]
  - FORMICATION [None]
  - INFLUENZA LIKE ILLNESS [None]
  - MORBID THOUGHTS [None]
  - PAIN [None]
  - SOMNOLENCE [None]
  - STRESS [None]
  - SUICIDAL IDEATION [None]
